FAERS Safety Report 8334208-X (Version None)
Quarter: 2012Q2

REPORT INFORMATION
  Report Type: 
  Country: None (occurrence: None)
  Receive Date: 20120503
  Receipt Date: 20120425
  Transmission Date: 20120825
  Serious: Yes (Hospitalization)
  Sender: FDA-Public Use
  Company Number: US-GLAXOSMITHKLINE-A0975153A

PATIENT
  Age: 71 Year
  Sex: Female

DRUGS (14)
  1. TOVIAZ [Concomitant]
  2. TRICOR [Concomitant]
  3. COREG [Suspect]
     Indication: CARDIAC FAILURE CONGESTIVE
     Dosage: 40MG TWICE PER DAY
     Route: 048
  4. BENADRYL [Concomitant]
  5. ZYRTEC [Concomitant]
  6. BENICAR [Concomitant]
  7. COREG [Concomitant]
     Dosage: 40MG UNKNOWN
     Route: 048
  8. ALBUTEROL [Concomitant]
  9. FLONASE [Concomitant]
  10. PERCOCET [Concomitant]
  11. LASIX [Concomitant]
  12. VALIUM [Concomitant]
  13. PREMARIN [Concomitant]
  14. SYNTHROID [Concomitant]

REACTIONS (2)
  - BLOOD PRESSURE DECREASED [None]
  - DIZZINESS [None]
